FAERS Safety Report 23624076 (Version 1)
Quarter: 2024Q1

REPORT INFORMATION
  Report Type: Spontaneous
  Country: GB (occurrence: GB)
  Receive Date: 20240312
  Receipt Date: 20240312
  Transmission Date: 20240410
  Serious: Yes (Other)
  Sender: FDA-Public Use
  Company Number: None

PATIENT
  Age: 5 Year
  Sex: Male

DRUGS (1)
  1. MONTELUKAST [Suspect]
     Active Substance: MONTELUKAST SODIUM
     Indication: Wheezing
     Dosage: 2 MILLIGRAM, QD (2MG ONCE A DAY AT NIGHT )
     Route: 065
     Dates: start: 20220710, end: 20240303

REACTIONS (5)
  - Hallucination [Recovered/Resolved]
  - Sleep terror [Recovered/Resolved]
  - Formication [Recovered/Resolved]
  - Nightmare [Recovering/Resolving]
  - Sleep disorder [Recovering/Resolving]
